FAERS Safety Report 6808935-7 (Version None)
Quarter: 2010Q2

REPORT INFORMATION
  Report Type: 
  Country: None (occurrence: None)
  Receive Date: 20100630
  Receipt Date: 20091029
  Transmission Date: 20101027
  Serious: No
  Sender: FDA-Public Use
  Company Number: US-PFIZER INC-2009259731

PATIENT
  Sex: Male

DRUGS (3)
  1. TIKOSYN [Suspect]
     Indication: ATRIAL FIBRILLATION
     Dosage: UNK
     Dates: start: 20050101
  2. ZOCOR [Suspect]
  3. MEVACOR [Concomitant]

REACTIONS (1)
  - MUSCULOSKELETAL DISCOMFORT [None]
